FAERS Safety Report 16345421 (Version 1)
Quarter: 2019Q2

REPORT INFORMATION
  Report Type: Spontaneous
  Country: US (occurrence: US)
  Receive Date: 20190523
  Receipt Date: 20190523
  Transmission Date: 20190711
  Serious: No
  Sender: FDA-Public Use
  Company Number: US-009507513-1905USA008203

PATIENT
  Sex: Female

DRUGS (1)
  1. COZAAR [Suspect]
     Active Substance: LOSARTAN POTASSIUM
     Indication: BLOOD PRESSURE MANAGEMENT
     Dosage: 1 DOSAGE FORM (1 TABLET BY MOUTH) USED FOR A WEEK
     Route: 048

REACTIONS (2)
  - Drug ineffective [Unknown]
  - Head discomfort [Unknown]
